FAERS Safety Report 7197651-0 (Version None)
Quarter: 2010Q4

REPORT INFORMATION
  Report Type: 
  Country: None (occurrence: None)
  Receive Date: 20101227
  Receipt Date: 20101217
  Transmission Date: 20110411
  Serious: Yes (Death, Hospitalization)
  Sender: FDA-Public Use
  Company Number: IT-MILLENNIUM PHARMACEUTICALS, INC.-2010-06231

PATIENT

DRUGS (2)
  1. VELCADE [Suspect]
     Indication: MULTIPLE MYELOMA
     Dosage: 2 MG, UNK
     Route: 042
     Dates: start: 20101116, end: 20101207
  2. DEXAMETHASONE [Concomitant]
     Indication: MULTIPLE MYELOMA
     Dosage: UNK
     Dates: start: 20101116

REACTIONS (7)
  - ASTHENIA [None]
  - CARDIAC FAILURE [None]
  - DYSPNOEA [None]
  - FALL [None]
  - INSOMNIA [None]
  - NEUROPATHY PERIPHERAL [None]
  - SKIN LACERATION [None]
